FAERS Safety Report 9577634 (Version 2)
Quarter: 2013Q4

REPORT INFORMATION
  Report Type: Spontaneous
  Country: US (occurrence: US)
  Receive Date: 20131001
  Receipt Date: 20131001
  Transmission Date: 20140711
  Serious: No
  Sender: FDA-Public Use
  Company Number: US-AMGEN-USASP2013006059

PATIENT
  Sex: Female
  Weight: 71.2 kg

DRUGS (5)
  1. ENBREL [Suspect]
     Indication: RHEUMATOID ARTHRITIS
     Dosage: 50 MG, QWK
     Route: 058
  2. ASPIRIN BUFFERED [Concomitant]
     Dosage: 325 MG, UNK
  3. VITAMIN D                          /00107901/ [Concomitant]
     Dosage: 1000 UNIT, UNK
  4. ALEVE [Concomitant]
     Dosage: 220 MG, UNK
  5. TYLENOL                            /00020001/ [Concomitant]
     Dosage: 325 MG, UNK

REACTIONS (3)
  - Headache [Unknown]
  - Bone pain [Unknown]
  - Eye pain [Unknown]
